FAERS Safety Report 7079894-X (Version None)
Quarter: 2010Q4

REPORT INFORMATION
  Report Type: 
  Country: None (occurrence: None)
  Receive Date: 20101102
  Receipt Date: 20101025
  Transmission Date: 20110411
  Serious: Yes (Other)
  Sender: FDA-Public Use
  Company Number: BR-PFIZER INC-2010120758

PATIENT
  Age: 60 Year
  Sex: Female
  Weight: 78 kg

DRUGS (6)
  1. CHAMPIX [Suspect]
     Indication: TOBACCO ABUSE
     Dosage: UNK
     Route: 048
     Dates: start: 20100921
  2. FUROSEMIDE [Concomitant]
     Indication: HYPERTENSION
     Dosage: 40 MG, 2X/DAY (EVERY 12 HOURS)
     Dates: start: 19900101
  3. FUROSEMIDE [Concomitant]
     Indication: FLUID RETENTION
  4. FORMOTEROL W/ BUDESONIDE [Concomitant]
     Indication: BRONCHITIS
     Dosage: 400 MG, 2X/DAY
     Dates: start: 20090101
  5. CARVEDILOL [Concomitant]
     Indication: HYPERTENSION
     Dosage: 12.5 MG, 1X/DAY
  6. LOSARTAN [Concomitant]
     Indication: HYPERTENSION
     Dosage: 50 MG, 1X/DAY

REACTIONS (18)
  - ABASIA [None]
  - ABNORMAL DREAMS [None]
  - CARDIOVASCULAR DISORDER [None]
  - CONDITION AGGRAVATED [None]
  - COUGH [None]
  - DEPRESSED MOOD [None]
  - DYSPHONIA [None]
  - EMOTIONAL DISTRESS [None]
  - FEELING HOT [None]
  - GASTRIC DISORDER [None]
  - HEADACHE [None]
  - MEMORY IMPAIRMENT [None]
  - MUSCULOSKELETAL STIFFNESS [None]
  - NIGHT SWEATS [None]
  - NIGHTMARE [None]
  - OEDEMA PERIPHERAL [None]
  - PAIN IN EXTREMITY [None]
  - SENSATION OF HEAVINESS [None]
